FAERS Safety Report 5954744-0 (Version None)
Quarter: 2008Q4

REPORT INFORMATION
  Report Type: 
  Country: None (occurrence: None)
  Receive Date: 20081113
  Receipt Date: 20081105
  Transmission Date: 20090506
  Serious: Yes (Life-Threatening)
  Sender: FDA-Public Use
  Company Number: MSTR-NO-0811S-0116

PATIENT
  Sex: Female

DRUGS (1)
  1. METASTRON [Suspect]
     Indication: METASTATIC PAIN
     Dosage: SINGLE DOSE, I.V.
     Route: 042
     Dates: start: 20080815, end: 20080815

REACTIONS (1)
  - FRACTURE [None]
